FAERS Safety Report 21247490 (Version 1)
Quarter: 2022Q3

REPORT INFORMATION
  Report Type: Spontaneous
  Country: PL (occurrence: PL)
  Receive Date: 20220824
  Receipt Date: 20220824
  Transmission Date: 20221027
  Serious: Yes (Hospitalization, Other)
  Sender: FDA-Public Use
  Company Number: PL-GILEAD-2022-0594416

PATIENT
  Age: 46 Year
  Sex: Male

DRUGS (4)
  1. TRUVADA [Suspect]
     Active Substance: EMTRICITABINE\TENOFOVIR DISOPROXIL FUMARATE
     Indication: HIV infection
     Dosage: UNK
     Route: 065
     Dates: start: 20130213, end: 202012
  2. LOPINAVIR\RITONAVIR [Concomitant]
     Active Substance: LOPINAVIR\RITONAVIR
  3. ZIDOVUDINE [Concomitant]
     Active Substance: ZIDOVUDINE
  4. RALTEGRAVIR [Concomitant]
     Active Substance: RALTEGRAVIR

REACTIONS (5)
  - Barrett^s oesophagus [Unknown]
  - Hodgkin^s disease [Recovered/Resolved]
  - Genotype drug resistance test positive [Recovered/Resolved]
  - Product use issue [Recovered/Resolved]
  - Product dose omission in error [Unknown]

NARRATIVE: CASE EVENT DATE: 20130101
